FAERS Safety Report 4450427-7 (Version None)
Quarter: 2004Q3

REPORT INFORMATION
  Report Type: 
  Country: None (occurrence: None)
  Receive Date: 20040914
  Receipt Date: 20040907
  Transmission Date: 20050211
  Serious: Yes (Death)
  Sender: FDA-Public Use
  Company Number: F01200402740

PATIENT
  Age: 71 Year
  Sex: Male

DRUGS (12)
  1. (CPT-11) SOLUTION 360 MG [Suspect]
     Indication: COLON CANCER METASTATIC
     Dosage: 360 MG Q3W
     Route: 042
     Dates: start: 20040818, end: 20040818
  2. XELODA [Suspect]
     Dosage: 3000 MG/D FROM D2 TO D15,Q3W, ORAL
     Route: 048
     Dates: start: 20040818, end: 20040829
  3. ONDASETRON (ONDANSETRON) [Concomitant]
  4. DEXAMETHASONE [Concomitant]
  5. FUROSEMIDE [Concomitant]
  6. CEFUROXIME AXETIL [Concomitant]
  7. PROFER (FERRITIN) [Concomitant]
  8. OMEPRAZOLE [Concomitant]
  9. FRAXIPARIN (HEPARIN-FRACTION, CALCIUM SALT) [Concomitant]
  10. ALDOLEO (CHLORTALIDONE, SPIRONOLACTONE) [Concomitant]
  11. KONAKION [Concomitant]
  12. FORTASEC (LOPERAMIDE) [Concomitant]

REACTIONS (14)
  - ABDOMINAL DISTENSION [None]
  - BACILLUS INFECTION [None]
  - CREPITATIONS [None]
  - DIARRHOEA [None]
  - FEELING COLD [None]
  - GENERAL PHYSICAL HEALTH DETERIORATION [None]
  - HYPERGLYCAEMIA [None]
  - HYPOKALAEMIA [None]
  - OEDEMA PERIPHERAL [None]
  - PALLOR [None]
  - PANCYTOPENIA [None]
  - PYREXIA [None]
  - RENAL FAILURE [None]
  - URINE OUTPUT DECREASED [None]
